FAERS Safety Report 18914962 (Version 2)
Quarter: 2021Q1

REPORT INFORMATION
  Report Type: Spontaneous
  Country: JP (occurrence: JP)
  Receive Date: 20210219
  Receipt Date: 20210308
  Transmission Date: 20210420
  Serious: Yes (Hospitalization, Other)
  Sender: FDA-Public Use
  Company Number: JP-ASTELLAS-2021JP002628

PATIENT
  Age: 95 Year
  Sex: Male
  Weight: 43 kg

DRUGS (64)
  1. LORATADINE. [Concomitant]
     Active Substance: LORATADINE
     Indication: CARDIAC FAILURE
     Dosage: 10 MG, ONCE DAILY, AFTER DINNER
     Route: 065
  2. COLCHICINE. [Concomitant]
     Active Substance: COLCHICINE
     Indication: PRODUCT USED FOR UNKNOWN INDICATION
     Dosage: UNK UNK, UNKNOWN FREQ.
     Route: 048
  3. CILNIDIPINE [Concomitant]
     Active Substance: CILNIDIPINE
     Dosage: 20 MG/DAY, UNKNOWN FREQ.
     Route: 065
  4. SELARA [Concomitant]
     Active Substance: EPLERENONE
     Dosage: 100 MG/DAY, UNKNOWN FREQ.
     Route: 065
  5. SILODOSIN OD [Concomitant]
     Indication: PROSTATE CANCER
     Dosage: 4 MG, TWICE DAILY (AFTER BREAKFAST AND DINNER)
     Route: 065
  6. CARVEDILOL. [Concomitant]
     Active Substance: CARVEDILOL
     Route: 065
  7. AZILVA [Concomitant]
     Active Substance: AZILSARTAN KAMEDOXOMIL
     Route: 065
  8. TEPRENONE [Concomitant]
     Active Substance: TEPRENONE
     Indication: CARDIAC FAILURE
     Dosage: 0.5 G, THRICE DAILY (AFTER EACH MEAL)
     Route: 065
  9. BETANIS [Suspect]
     Active Substance: MIRABEGRON
     Indication: PROSTATE CANCER
     Dosage: 25 MG, ONCE DAILY (AFTER DINNER)
     Route: 065
  10. MEMARY [Concomitant]
     Active Substance: MEMANTINE HYDROCHLORIDE
     Indication: RESTLESSNESS
     Dosage: 5 MG/DAY, UNKNOWN FREQ.
     Route: 065
  11. NIFEDIPINE CR SANWA [Concomitant]
     Dosage: 80 MG/DAY, UNKNOWN FREQ.
     Route: 065
  12. ENALAPRIL MALEATE. [Concomitant]
     Active Substance: ENALAPRIL MALEATE
     Indication: PRODUCT USED FOR UNKNOWN INDICATION
     Route: 065
  13. NITROGLYCERIN. [Concomitant]
     Active Substance: NITROGLYCERIN
     Dosage: UNK UNK, UNKNOWN FREQ.
     Route: 041
  14. FUROSEMIDE. [Concomitant]
     Active Substance: FUROSEMIDE
     Indication: PRODUCT USED FOR UNKNOWN INDICATION
     Route: 065
  15. CILNIDIPINE [Concomitant]
     Active Substance: CILNIDIPINE
     Indication: CARDIAC FAILURE
     Dosage: 20 MG/DAY, UNKNOWN FREQ.
     Route: 065
  16. SILODOSIN OD [Concomitant]
     Dosage: 8 MG/DAY, UNKNOWN FREQ.
     Route: 065
  17. ITOROL [Concomitant]
     Active Substance: ISOSORBIDE MONONITRATE
     Dosage: 40 MG/DAY, UNKNOWN FREQ.
     Route: 065
  18. LANSOPRAZOLE TOWA [Concomitant]
     Active Substance: LANSOPRAZOLE
     Route: 065
  19. FEBURIC [Concomitant]
     Active Substance: FEBUXOSTAT
     Route: 065
  20. FEBURIC [Concomitant]
     Active Substance: FEBUXOSTAT
     Indication: CARDIAC FAILURE
     Route: 065
  21. DOXAZOSIN [Concomitant]
     Active Substance: DOXAZOSIN MESYLATE
     Route: 065
  22. MIYA?BM [Concomitant]
     Active Substance: CLOSTRIDIUM BUTYRICUM SPORES STRAIN M-55
     Indication: CARDIAC FAILURE
     Dosage: 1 G, THRICE DAILY (AFTER EACH MEAL)
     Route: 065
  23. NIFLAN [Concomitant]
     Active Substance: PRANOPROFEN
     Indication: GLAUCOMA
     Dosage: UNK UNK, THRICE DAILY
     Route: 047
  24. SAMSCA [Concomitant]
     Active Substance: TOLVAPTAN
     Indication: CARDIAC FAILURE
     Dosage: 0.5 DF, ONCE DAILY (AFTER BREAKFAST)
     Route: 065
  25. LORATADINE. [Concomitant]
     Active Substance: LORATADINE
     Indication: CARDIAC FAILURE
     Dosage: UNK UNK, UNKNOWN FREQ.
     Route: 048
  26. GENTAMICIN SULFATE. [Concomitant]
     Active Substance: GENTAMICIN SULFATE
     Indication: PRODUCT USED FOR UNKNOWN INDICATION
     Dosage: UNK UNK, UNKNOWN FREQ.
     Route: 048
  27. AZILVA [Concomitant]
     Active Substance: AZILSARTAN KAMEDOXOMIL
     Indication: CARDIAC FAILURE
     Dosage: 40 MG, ONCE DAILY (AFTER BREAKFAST)
     Route: 065
  28. DOXAZOSIN [Concomitant]
     Active Substance: DOXAZOSIN MESYLATE
     Indication: CARDIAC FAILURE
     Dosage: 4 MG, ONCE DAILY (AFTER DINNER)
     Route: 065
  29. TEPRENONE [Concomitant]
     Active Substance: TEPRENONE
     Dosage: 1.5 G/DAY, UNKNOWN FREQ.
     Route: 065
  30. PLAVIX [Concomitant]
     Active Substance: CLOPIDOGREL BISULFATE
     Indication: PRODUCT USED FOR UNKNOWN INDICATION
     Route: 065
  31. SAMSCA [Concomitant]
     Active Substance: TOLVAPTAN
     Dosage: 3.75 MG/DAY, UNKNOWN FREQ.
     Route: 048
  32. TRANEXAMIC ACID. [Concomitant]
     Active Substance: TRANEXAMIC ACID
     Indication: PRODUCT USED FOR UNKNOWN INDICATION
     Dosage: UNK UNK, UNKNOWN FREQ.
     Route: 048
  33. SELARA [Concomitant]
     Active Substance: EPLERENONE
     Indication: CARDIAC FAILURE
     Route: 065
  34. NIFEDIPINE CR SANWA [Concomitant]
     Indication: CARDIAC FAILURE
     Dosage: 60 MG/DAY, UNKNOWN FREQ. (MORNING 2, EVENING 1)
     Route: 065
  35. CARVEDILOL. [Concomitant]
     Active Substance: CARVEDILOL
     Indication: CARDIAC FAILURE
     Route: 065
  36. MIYA?BM [Concomitant]
     Active Substance: CLOSTRIDIUM BUTYRICUM SPORES STRAIN M-55
     Dosage: 3 G/DAY, UNKNOWN FREQ.
     Route: 065
  37. CALTAN [Concomitant]
     Active Substance: CALCIUM CARBONATE
     Indication: PRODUCT USED FOR UNKNOWN INDICATION
     Route: 065
  38. LORATADINE. [Concomitant]
     Active Substance: LORATADINE
     Route: 065
  39. NIFEDIPINE CR SANWA [Concomitant]
     Indication: CARDIAC FAILURE
     Route: 065
  40. ITOROL [Concomitant]
     Active Substance: ISOSORBIDE MONONITRATE
     Indication: CARDIAC FAILURE
     Dosage: 20 MG, TWICE DAILY (AFTER BREAKFAST AND DINNER)
     Route: 065
  41. LANSOPRAZOLE TOWA [Concomitant]
     Active Substance: LANSOPRAZOLE
     Indication: CARDIAC FAILURE
     Dosage: 30 MG, ONCE DAILY (AFTER BREAKFAST)
     Route: 065
  42. DOXAZOSIN [Concomitant]
     Active Substance: DOXAZOSIN MESYLATE
     Dosage: 8 MG/DAY, UNKNOWN FREQ.
     Route: 065
  43. BELSOMRA [Concomitant]
     Active Substance: SUVOREXANT
     Indication: PRODUCT USED FOR UNKNOWN INDICATION
     Route: 065
  44. XALATAN [Concomitant]
     Active Substance: LATANOPROST
     Indication: GLAUCOMA
     Dosage: UNK UNK, ONCE DAILY
     Route: 047
  45. SAMSCA [Concomitant]
     Active Substance: TOLVAPTAN
     Indication: CARDIAC FAILURE
     Dosage: UNK UNK, UNKNOWN FREQ.
     Route: 065
  46. MYOCOR [Concomitant]
     Active Substance: NITROGLYCERIN
     Indication: CARDIAC FAILURE
     Dosage: 1 CAN, AS NEEDED (DURING ATTACK)
     Route: 065
  47. MYOCOR [Concomitant]
     Active Substance: NITROGLYCERIN
     Indication: CARDIAC FAILURE
     Dosage: UNK UNK, UNKNOWN FREQ.
     Route: 065
  48. LAC?B [Concomitant]
     Active Substance: BIFIDOBACTERIUM SPP.
     Indication: PRODUCT USED FOR UNKNOWN INDICATION
     Dosage: UNK UNK, UNKNOWN FREQ.
     Route: 048
  49. SELARA [Concomitant]
     Active Substance: EPLERENONE
     Indication: CARDIAC FAILURE
     Dosage: 100 MG/DAY, UNKNOWN FREQ.
     Route: 065
  50. CARVEDILOL. [Concomitant]
     Active Substance: CARVEDILOL
     Indication: CARDIAC FAILURE
     Dosage: 10 MG, ONCE DAILY (AFTER BREAKFAST)
     Route: 065
  51. FEBURIC [Concomitant]
     Active Substance: FEBUXOSTAT
     Indication: CARDIAC FAILURE
     Dosage: 20 MG, ONCE DAILY (AFTER BREAKFAST)
     Route: 065
  52. IRBESARTAN DSPB [Concomitant]
     Indication: CARDIAC FAILURE
     Dosage: 100 MG, ONCE DAILY (AFTER DINNER)
     Route: 065
  53. AZOSEMIDE [Concomitant]
     Active Substance: AZOSEMIDE
     Indication: CARDIAC FAILURE
     Dosage: 30 MG, TWICE DAILY (AFTER BREAKFAST AND LUNCH)
     Route: 065
  54. ROSUVASTATIN. [Concomitant]
     Active Substance: ROSUVASTATIN
     Indication: PRODUCT USED FOR UNKNOWN INDICATION
     Route: 065
  55. ARGAMATE [Concomitant]
     Active Substance: CALCIUM POLYSTYRENE SULFONATE
     Indication: PRODUCT USED FOR UNKNOWN INDICATION
     Route: 065
  56. NITROGLYCERIN. [Concomitant]
     Active Substance: NITROGLYCERIN
     Indication: PRODUCT USED FOR UNKNOWN INDICATION
     Dosage: UNK UNK, UNKNOWN FREQ.
     Route: 065
  57. CABPIRIN [Concomitant]
     Indication: PRODUCT USED FOR UNKNOWN INDICATION
     Route: 065
  58. EVRENZO [Suspect]
     Active Substance: ROXADUSTAT
     Indication: NEPHROGENIC ANAEMIA
     Dosage: 50 MG, THRICE WEEKLY, ON TUESDAY, THURSDAYS AND SATURDAYS
     Route: 048
     Dates: start: 20201224, end: 20210123
  59. MEMARY [Concomitant]
     Active Substance: MEMANTINE HYDROCHLORIDE
     Indication: DELIRIUM
  60. IRBESARTAN DSPB [Concomitant]
     Dosage: 200 MG/DAY, UNKNOWN FREQ.
     Route: 065
  61. AZOSEMIDE [Concomitant]
     Active Substance: AZOSEMIDE
     Dosage: 60 MG/DAY, UNKNOWN FREQ.
     Route: 065
  62. SAMSCA [Concomitant]
     Active Substance: TOLVAPTAN
     Dosage: 7.5 MG/DAY, UNKNOWN FREQ.
     Route: 048
  63. LASIX [Concomitant]
     Active Substance: FUROSEMIDE
     Indication: PRODUCT USED FOR UNKNOWN INDICATION
     Route: 042
  64. CEFTRIAXONE SODIUM HYDRATE [Concomitant]
     Active Substance: CEFTRIAXONE SODIUM
     Indication: PRODUCT USED FOR UNKNOWN INDICATION
     Dosage: 1 G/DAY, UNKNOWN FREQ.
     Route: 065

REACTIONS (2)
  - Acute myocardial infarction [Recovering/Resolving]
  - Off label use [Unknown]

NARRATIVE: CASE EVENT DATE: 20210123
